FAERS Safety Report 22023642 (Version 1)
Quarter: 2023Q1

REPORT INFORMATION
  Report Type: Spontaneous
  Country: US (occurrence: US)
  Receive Date: 20230223
  Receipt Date: 20230223
  Transmission Date: 20230418
  Serious: Yes (Death, Life-Threatening, Hospitalization)
  Sender: FDA-Public Use
  Company Number: US-drreddys-LIT/USA/23/0161405

PATIENT
  Age: 53 Year
  Sex: Male

DRUGS (3)
  1. CINACALCET HYDROCHLORIDE [Suspect]
     Active Substance: CINACALCET HYDROCHLORIDE
     Indication: Blood calcium increased
  2. ZOLEDRONIC ACID [Suspect]
     Active Substance: ZOLEDRONIC ACID
     Indication: Blood calcium increased
  3. CALCITONIN [Suspect]
     Active Substance: CALCITONIN
     Indication: Blood calcium increased
     Dosage: 100 UNITS

REACTIONS (3)
  - Acute respiratory distress syndrome [Fatal]
  - Hypocalcaemia [Not Recovered/Not Resolved]
  - Product use in unapproved indication [Unknown]
